FAERS Safety Report 8133616-X (Version None)
Quarter: 2012Q1

REPORT INFORMATION
  Report Type: 
  Country: None (occurrence: None)
  Receive Date: 20120213
  Receipt Date: 20120130
  Transmission Date: 20120608
  Serious: Yes (Other)
  Sender: FDA-Public Use
  Company Number: RU-ROCHE-1037924

PATIENT
  Age: 64 Year
  Sex: Male
  Weight: 97 kg

DRUGS (6)
  1. BISOPROLOL FUMARAT [Concomitant]
  2. NORVASC [Concomitant]
  3. ACTIVASE [Suspect]
     Indication: CEREBROVASCULAR ACCIDENT
     Dosage: DAILY DOSE: 50 MG/ML
     Route: 042
     Dates: start: 20120123, end: 20120123
  4. FRAXIPARIN [Concomitant]
  5. MONOPRIL [Concomitant]
  6. ASPIRIN [Concomitant]

REACTIONS (3)
  - HAEMOGLOBIN INCREASED [None]
  - POLYCYTHAEMIA [None]
  - HAEMATOCRIT INCREASED [None]
